FAERS Safety Report 6035976-2 (Version None)
Quarter: 2009Q1

REPORT INFORMATION
  Report Type: 
  Country: None (occurrence: None)
  Receive Date: 20090113
  Receipt Date: 20090109
  Transmission Date: 20090719
  Serious: Yes (Life-Threatening, Hospitalization)
  Sender: FDA-Public Use
  Company Number: DE-WYE-G02904409

PATIENT
  Sex: Female
  Weight: 71 kg

DRUGS (10)
  1. TORISEL [Suspect]
     Indication: RENAL CANCER METASTATIC
     Route: 042
     Dates: start: 20080212, end: 20080304
  2. TORISEL [Suspect]
     Route: 042
     Dates: start: 20080417, end: 20080916
  3. MORPHINE SULFATE [Concomitant]
     Route: 048
  4. NOVALGIN [Concomitant]
     Route: 048
  5. RANITIDINE [Concomitant]
     Indication: PREMEDICATION
  6. ACTRAPID HUMAN [Concomitant]
     Route: 058
  7. PROTAPHAN HUMAN [Concomitant]
     Route: 058
  8. PAMIDRONATE DISODIUM [Concomitant]
     Route: 042
  9. OBSIDAN [Concomitant]
     Route: 048
  10. NULYTELY [Concomitant]
     Route: 048

REACTIONS (1)
  - CEREBROVASCULAR ACCIDENT [None]
